FAERS Safety Report 9913887 (Version 1)
Quarter: 2014Q1

REPORT INFORMATION
  Report Type: Spontaneous
  Country: US (occurrence: None)
  Receive Date: 20140218
  Receipt Date: 20140218
  Transmission Date: 20141002
  Serious: Yes (Hospitalization)
  Sender: FDA-Public Use
  Company Number: 1402-0319

PATIENT
  Age: 89 Year
  Sex: Female

DRUGS (1)
  1. EYLEA (AFLIBERCEPT) (AFLIBERCEPT) [Suspect]

REACTIONS (3)
  - Myocardial infarction [None]
  - Headache [None]
  - Anxiety [None]
